FAERS Safety Report 4425511-4 (Version None)
Quarter: 2004Q3

REPORT INFORMATION
  Report Type: 
  Country: None (occurrence: None)
  Receive Date: 20040809
  Receipt Date: 20040726
  Transmission Date: 20050211
  Serious: Yes (Other)
  Sender: FDA-Public Use
  Company Number: 200419364BWH

PATIENT
  Age: 52 Year
  Sex: Female
  Weight: 82.1011 kg

DRUGS (4)
  1. AVELOX [Suspect]
     Indication: CHRONIC SINUSITIS
     Dosage: 400 MG, QD, ORAL
     Route: 048
     Dates: start: 20040614, end: 20040719
  2. ZOCOR [Concomitant]
  3. TYLENOL [Concomitant]
  4. ASPIRIN [Concomitant]

REACTIONS (2)
  - DRUG INEFFECTIVE [None]
  - HEPATITIS A [None]
